FAERS Safety Report 17500043 (Version 1)
Quarter: 2020Q1

REPORT INFORMATION
  Report Type: Spontaneous
  Country: US (occurrence: US)
  Receive Date: 20200305
  Receipt Date: 20200305
  Transmission Date: 20200409
  Serious: No
  Sender: FDA-Public Use
  Company Number: US-VISTAPHARM, INC.-VER201906-000458

PATIENT
  Sex: Female

DRUGS (12)
  1. PHENYTOIN ORAL SUSPENSION, USP 125 MG/5 ML [Suspect]
     Active Substance: PHENYTOIN
     Dosage: 9 ML
     Route: 048
  2. VITAMIN D2 [Concomitant]
     Active Substance: ERGOCALCIFEROL
     Indication: PRODUCT USED FOR UNKNOWN INDICATION
     Dosage: 50 THOUSAND UNITS
     Route: 048
  3. RENVELA [Concomitant]
     Active Substance: SEVELAMER CARBONATE
     Indication: PHOSPHORUS METABOLISM DISORDER
     Dosage: 800 MG (2 TABLETS BEFORE EATING)
     Route: 048
  4. PHENYTOIN ORAL SUSPENSION, USP 125 MG/5 ML [Suspect]
     Active Substance: PHENYTOIN
     Indication: SEIZURE
     Dosage: 8.5 ML
     Route: 048
  5. PROAIR HFA [Concomitant]
     Active Substance: ALBUTEROL SULFATE
     Indication: CHRONIC OBSTRUCTIVE PULMONARY DISEASE
     Dosage: 2 PUFFS
  6. IPRATROPIUM BROMIDE. [Concomitant]
     Active Substance: IPRATROPIUM BROMIDE
     Indication: DYSPNOEA
     Dosage: INHALED VIA NEBULIZER
  7. PRESERVISION AREDS 2 [Concomitant]
     Active Substance: MINERALS\VITAMINS
     Indication: CATARACT
     Dosage: UNKNOWN
  8. ASPIRIN. [Concomitant]
     Active Substance: ASPIRIN
     Indication: HEART DISEASE CONGENITAL
     Dosage: 81 MG
     Route: 048
  9. DILAUDID [Concomitant]
     Active Substance: HYDROMORPHONE HYDROCHLORIDE
     Dosage: 2 MG
     Route: 048
  10. LINZESS [Concomitant]
     Active Substance: LINACLOTIDE
     Indication: CONSTIPATION
     Dosage: 72 MCG
     Route: 048
  11. PAROXETINE HCL [Concomitant]
     Active Substance: PAROXETINE HYDROCHLORIDE
     Indication: ANTIDEPRESSANT DRUG LEVEL
     Dosage: 10 MG
     Route: 048
  12. MINOXIDIL. [Concomitant]
     Active Substance: MINOXIDIL
     Indication: BLOOD PRESSURE MEASUREMENT
     Dosage: 2.5 MG
     Route: 048

REACTIONS (3)
  - Blood pressure increased [Unknown]
  - Dyspnoea [Unknown]
  - Palpitations [Unknown]
